FAERS Safety Report 7019857-3 (Version None)
Quarter: 2010Q3

REPORT INFORMATION
  Report Type: 
  Country: None (occurrence: None)
  Receive Date: 20100923
  Receipt Date: 20100908
  Transmission Date: 20110219
  Serious: Yes (Hospitalization, Other)
  Sender: FDA-Public Use
  Company Number: ALA_00755_2010

PATIENT
  Age: 13 Year
  Sex: Female

DRUGS (4)
  1. MESALAMINE [Suspect]
     Indication: PRODUCT USED FOR UNKNOWN INDICATION
     Dosage: DF
  2. MERCAPTOPURINE [Suspect]
     Indication: PRODUCT USED FOR UNKNOWN INDICATION
     Dosage: DF/A FEW WEEKS
  3. BUDESONIDE [Concomitant]
  4. OMEPRAZOLE [Concomitant]

REACTIONS (8)
  - ALOPECIA [None]
  - BLOOD CULTURE POSITIVE [None]
  - BONE MARROW FAILURE [None]
  - DIZZINESS [None]
  - ESCHERICHIA INFECTION [None]
  - PARVOVIRUS B19 TEST POSITIVE [None]
  - UPPER RESPIRATORY TRACT INFECTION [None]
  - VIRAL INFECTION [None]
